FAERS Safety Report 4748944-5 (Version None)
Quarter: 2005Q3

REPORT INFORMATION
  Report Type: 
  Country: None (occurrence: None)
  Receive Date: 20050819
  Receipt Date: 20050811
  Transmission Date: 20060218
  Serious: Yes (Hospitalization)
  Sender: FDA-Public Use
  Company Number: FR-SANOFI-SYNTHELABO-A02200502155

PATIENT
  Age: 73 Year
  Sex: Male

DRUGS (6)
  1. ELOXATIN [Suspect]
     Indication: GASTRIC CANCER
     Dosage: UNK
     Route: 042
     Dates: start: 20050630, end: 20050630
  2. FOLINIC ACID [Suspect]
     Indication: GASTRIC CANCER
     Dosage: UNK
     Route: 042
     Dates: start: 20050630, end: 20050630
  3. FLUOROURACIL [Suspect]
     Indication: GASTRIC CANCER
     Dosage: UNK
     Route: 042
     Dates: start: 20050630, end: 20050701
  4. IMOVANE [Suspect]
     Dosage: UNK
     Route: 048
     Dates: start: 20050101
  5. TOPALGIC [Concomitant]
     Dosage: UNK
     Route: 065
  6. PRIMPERAN INJ [Concomitant]
     Dosage: UNK
     Route: 065

REACTIONS (4)
  - ALANINE AMINOTRANSFERASE INCREASED [None]
  - BLOOD ALKALINE PHOSPHATASE INCREASED [None]
  - CHOLESTASIS [None]
  - GAMMA-GLUTAMYLTRANSFERASE INCREASED [None]
